FAERS Safety Report 17561718 (Version 2)
Quarter: 2020Q2

REPORT INFORMATION
  Report Type: Spontaneous
  Country: GB (occurrence: GB)
  Receive Date: 20200319
  Receipt Date: 20200421
  Transmission Date: 20200713
  Serious: Yes (Death)
  Sender: FDA-Public Use
  Company Number: GB-MYLANLABS-2020M1029287

PATIENT
  Age: 49 Year
  Sex: Male

DRUGS (4)
  1. MIDAZOLAM. [Concomitant]
     Active Substance: MIDAZOLAM
     Dosage: 10 MG IN 2 ML PRE ROLLED SYRINGES P.R.N. BD) USES APPOX ONCE EVERY WEEK.
     Route: 002
  2. LORAZEPAM. [Concomitant]
     Active Substance: LORAZEPAM
     Dosage: 2 MILLIGRAM, BID
     Route: 048
  3. CLOZARIL [Suspect]
     Active Substance: CLOZAPINE
     Indication: SCHIZOPHRENIA
     Dosage: 300 MILLIGRAM, PM
     Route: 048
     Dates: start: 20010701
  4. EPILIM [Concomitant]
     Active Substance: VALPROATE SODIUM
     Dosage: 1 GRAM, BID
     Route: 048

REACTIONS (5)
  - Death [Fatal]
  - Fall [Recovered/Resolved]
  - Balance disorder [Recovered/Resolved]
  - Viral infection [Recovered/Resolved]
  - Antipsychotic drug level increased [Recovered/Resolved]

NARRATIVE: CASE EVENT DATE: 20200306
